FAERS Safety Report 5210760-8 (Version None)
Quarter: 2006Q4

REPORT INFORMATION
  Report Type: 
  Country: None (occurrence: None)
  Receive Date: 20061101
  Receipt Date: 20060802
  Transmission Date: 20070319
  Serious: No
  Sender: FDA-Public Use
  Company Number: 2006PV018730

PATIENT
  Age: 54 Year
  Sex: Female
  Weight: 93.8946 kg

DRUGS (9)
  1. SYMLIN [Suspect]
     Indication: DIABETES MELLITUS
     Dosage: SEE IMAGE
     Route: 058
     Dates: start: 20060601, end: 20060701
  2. SYMLIN [Suspect]
     Indication: DIABETES MELLITUS
     Dosage: SEE IMAGE
     Route: 058
     Dates: start: 20060701, end: 20060701
  3. SYMLIN [Suspect]
     Indication: DIABETES MELLITUS
     Dosage: SEE IMAGE
     Route: 058
     Dates: start: 20060703
  4. REGULAR INSULIN [Concomitant]
  5. LANTUS [Concomitant]
  6. HUMULIN 70/30 [Concomitant]
  7. PREDNISONE [Concomitant]
  8. TIGAN [Concomitant]
  9. REGLAN [Concomitant]

REACTIONS (3)
  - NAUSEA [None]
  - VOMITING [None]
  - WEIGHT DECREASED [None]
